FAERS Safety Report 21221795 (Version 1)
Quarter: 2022Q3

REPORT INFORMATION
  Report Type: Spontaneous
  Country: US (occurrence: None)
  Receive Date: 20220817
  Receipt Date: 20220817
  Transmission Date: 20221027
  Serious: No
  Sender: FDA-Public Use
  Company Number: 2022A264689

PATIENT
  Age: 30224 Day
  Sex: Female
  Weight: 54.9 kg

DRUGS (1)
  1. SYMBICORT [Suspect]
     Active Substance: BUDESONIDE\FORMOTEROL FUMARATE DIHYDRATE
     Indication: Chronic obstructive pulmonary disease
     Dosage: 80-4.5 MCG 2 PUFFS TWO TIMES A DAY
     Route: 055

REACTIONS (4)
  - Stomatitis [Unknown]
  - Device use issue [Unknown]
  - Intentional underdose [Unknown]
  - Device malfunction [Unknown]

NARRATIVE: CASE EVENT DATE: 20220719
